FAERS Safety Report 23354613 (Version 4)
Quarter: 2025Q1

REPORT INFORMATION
  Report Type: Report from Study
  Country: US (occurrence: US)
  Receive Date: 20240101
  Receipt Date: 20250205
  Transmission Date: 20250409
  Serious: Yes (Other)
  Sender: TAKEDA
  Company Number: US-TAKEDA-2023TUS013651

PATIENT
  Sex: Female

DRUGS (1)
  1. VEDOLIZUMAB [Suspect]
     Active Substance: VEDOLIZUMAB
     Indication: Crohn^s disease
     Dosage: 300 MILLIGRAM, Q4WEEKS

REACTIONS (6)
  - Mental impairment [Unknown]
  - Malaise [Unknown]
  - Stress [Unknown]
  - Gait inability [Unknown]
  - Blood pressure increased [Unknown]
  - Off label use [Unknown]
